FAERS Safety Report 4470733-X (Version None)
Quarter: 2004Q4

REPORT INFORMATION
  Report Type: 
  Country: None (occurrence: None)
  Receive Date: 20041006
  Receipt Date: 20040902
  Transmission Date: 20050328
  Serious: Yes (Other)
  Sender: FDA-Public Use
  Company Number: 206995

PATIENT
  Age: 39 Year
  Sex: Female
  Weight: 63.6 kg

DRUGS (1)
  1. XOLAIR [Suspect]
     Dosage: 150 MG, 1/MONTH
     Dates: start: 20040213, end: 20040326

REACTIONS (2)
  - ABORTION SPONTANEOUS [None]
  - DRUG EXPOSURE DURING PREGNANCY [None]
